FAERS Safety Report 8831953 (Version 1)
Quarter: 2012Q4

REPORT INFORMATION
  Report Type: 
  Country: ZA (occurrence: ZA)
  Receive Date: 20121009
  Receipt Date: 20121009
  Transmission Date: 20130627
  Serious: Yes (Other)
  Sender: FDA-Public Use
  Company Number: ZA-PFIZER INC-2012245926

PATIENT
  Age: 45 Year
  Sex: Female

DRUGS (1)
  1. CELEBREX [Suspect]
     Indication: EAR PAIN
     Dosage: 200 mg, 1x/day (od)
     Route: 048

REACTIONS (4)
  - Scotoma [Recovered/Resolved]
  - Visual impairment [Recovered/Resolved]
  - Photopsia [Recovered/Resolved]
  - Migraine [Recovered/Resolved]
